FAERS Safety Report 10261243 (Version 4)
Quarter: 2014Q3

REPORT INFORMATION
  Report Type: Spontaneous
  Country: US (occurrence: US)
  Receive Date: 20140626
  Receipt Date: 20140815
  Transmission Date: 20150326
  Serious: No
  Sender: FDA-Public Use
  Company Number: US-009507513-1406USA011065

PATIENT
  Age: 46 Year
  Sex: Female
  Weight: 63.49 kg

DRUGS (1)
  1. DULERA [Suspect]
     Active Substance: FORMOTEROL FUMARATE DIHYDRATE\MOMETASONE FUROATE
     Indication: ASTHMA
     Dosage: 100/5 MCG/ ^TWO PUFFS ONCE OR TWICE DAILY^
     Route: 055
     Dates: start: 2013

REACTIONS (4)
  - Oropharyngeal pain [Recovered/Resolved]
  - Foot operation [Recovered/Resolved]
  - Drug administration error [Unknown]
  - Product container issue [Unknown]

NARRATIVE: CASE EVENT DATE: 201306
